FAERS Safety Report 5385661-5 (Version None)
Quarter: 2007Q3

REPORT INFORMATION
  Report Type: 
  Country: None (occurrence: None)
  Receive Date: 20070712
  Receipt Date: 20070702
  Transmission Date: 20080115
  Serious: Yes (Death)
  Sender: FDA-Public Use
  Company Number: US-PFIZER INC-2006048539

PATIENT
  Sex: Male
  Weight: 93.9 kg

DRUGS (3)
  1. BEXTRA [Suspect]
     Indication: PAIN MANAGEMENT
     Route: 065
     Dates: start: 20030628, end: 20040729
  2. BEXTRA [Suspect]
     Indication: ARTHRITIS
  3. BEXTRA [Suspect]
     Indication: ARTHRALGIA

REACTIONS (4)
  - CARDIAC ARREST [None]
  - CORONARY ARTERY DISEASE [None]
  - MYOCARDIAL INFARCTION [None]
  - RESPIRATORY ARREST [None]
